FAERS Safety Report 10187833 (Version 1)
Quarter: 2014Q2

REPORT INFORMATION
  Report Type: Spontaneous
  Country: US (occurrence: US)
  Receive Date: 20140522
  Receipt Date: 20140522
  Transmission Date: 20141212
  Serious: No
  Sender: FDA-Public Use
  Company Number: US-SA-2013SA103182

PATIENT
  Age: 67 Year
  Sex: Female

DRUGS (3)
  1. LANTUS SOLOSTAR [Suspect]
     Indication: TYPE 2 DIABETES MELLITUS
     Dosage: INCREASING HER DOSE FROM 20 UP TO 30 UNITS A DAY DOSE:30 UNIT(S)
     Route: 051
     Dates: start: 201307
  2. SOLOSTAR [Concomitant]
  3. ANTIHYPERTENSIVES [Concomitant]

REACTIONS (2)
  - Dysgeusia [Unknown]
  - Condition aggravated [Unknown]
